FAERS Safety Report 12371535 (Version 1)
Quarter: 2016Q2

REPORT INFORMATION
  Report Type: Spontaneous
  Country: SG (occurrence: SG)
  Receive Date: 20160516
  Receipt Date: 20160516
  Transmission Date: 20160815
  Serious: Yes (Other)
  Sender: FDA-Public Use
  Company Number: SG-SA-2016SA091200

PATIENT
  Age: 50 Year
  Sex: Male

DRUGS (12)
  1. ETHAMBUTOL [Suspect]
     Active Substance: ETHAMBUTOL HYDROCHLORIDE
     Indication: UVEITIS
     Route: 048
  2. RIFAMPICIN [Interacting]
     Active Substance: RIFAMPIN
     Indication: TUBERCULOSIS OF EYE
     Route: 048
  3. PREDNISOLONE. [Interacting]
     Active Substance: PREDNISOLONE
     Indication: UVEITIS
     Route: 048
  4. ISONIAZID. [Suspect]
     Active Substance: ISONIAZID
     Indication: TUBERCULOSIS OF EYE
     Route: 048
  5. PREDNISOLONE. [Interacting]
     Active Substance: PREDNISOLONE
     Indication: CHORIORETINITIS
     Route: 048
  6. PREDNISOLONE. [Interacting]
     Active Substance: PREDNISOLONE
     Indication: TUBERCULOSIS OF EYE
     Route: 048
  7. ISONIAZID. [Suspect]
     Active Substance: ISONIAZID
     Indication: UVEITIS
     Route: 048
  8. ETHAMBUTOL [Suspect]
     Active Substance: ETHAMBUTOL HYDROCHLORIDE
     Indication: TUBERCULOSIS OF EYE
     Route: 048
  9. ISONIAZID. [Suspect]
     Active Substance: ISONIAZID
     Indication: CHORIORETINITIS
     Route: 048
  10. RIFAMPICIN [Suspect]
     Active Substance: RIFAMPIN
     Indication: UVEITIS
     Route: 048
  11. ETHAMBUTOL [Suspect]
     Active Substance: ETHAMBUTOL HYDROCHLORIDE
     Indication: CHORIORETINITIS
     Route: 048
  12. RIFAMPICIN [Interacting]
     Active Substance: RIFAMPIN
     Indication: CHORIORETINITIS
     Route: 048

REACTIONS (8)
  - Paradoxical drug reaction [Recovered/Resolved with Sequelae]
  - Retinal fibrosis [Recovered/Resolved with Sequelae]
  - Chorioretinal scar [Not Recovered/Not Resolved]
  - Tuberculosis [Recovered/Resolved with Sequelae]
  - Chorioretinitis [Recovered/Resolved with Sequelae]
  - Visual acuity reduced [Not Recovered/Not Resolved]
  - Drug ineffective [Unknown]
  - Drug interaction [Unknown]
